FAERS Safety Report 7092443-5 (Version None)
Quarter: 2010Q4

REPORT INFORMATION
  Report Type: 
  Country: None (occurrence: None)
  Receive Date: 20101110
  Receipt Date: 20100115
  Transmission Date: 20110411
  Serious: Yes (Other)
  Sender: FDA-Public Use
  Company Number: US-ASTRAZENECA-2009SE19322

PATIENT
  Age: 44 Year
  Sex: Male
  Weight: 86.2 kg

DRUGS (16)
  1. SEROQUEL [Suspect]
     Indication: DEPRESSION
     Route: 048
     Dates: start: 19990101, end: 20050101
  2. SEROQUEL [Suspect]
     Indication: HALLUCINATION, AUDITORY
     Route: 048
     Dates: start: 19990101, end: 20050101
  3. SEROQUEL [Suspect]
     Indication: PARANOIA
     Route: 048
     Dates: start: 19990101, end: 20050101
  4. SEROQUEL [Suspect]
     Dosage: TWO TAB IN MORNING
     Route: 048
     Dates: start: 20001004
  5. SEROQUEL [Suspect]
     Dosage: TWO TAB IN MORNING
     Route: 048
     Dates: start: 20001004
  6. SEROQUEL [Suspect]
     Dosage: TWO TAB IN MORNING
     Route: 048
     Dates: start: 20001004
  7. ABILIFY [Concomitant]
     Dates: start: 20090929
  8. HALDOL [Concomitant]
  9. RISPERDAL [Concomitant]
  10. THORAZINE [Concomitant]
  11. ZYPREXA [Concomitant]
     Dosage: 30 MG DAILY
     Dates: start: 20001004
  12. SYMBYAX [Concomitant]
  13. TEGRETOL [Concomitant]
     Dosage: 1000 MG
     Dates: start: 20001004
  14. EFFEXOR [Concomitant]
     Dates: start: 20001004
  15. TRAZODONE [Concomitant]
     Dosage: 50 MG AT NIGHT
     Dates: start: 20001004
  16. KLONOPIN [Concomitant]
     Dates: start: 20001004

REACTIONS (2)
  - DIABETIC NEUROPATHY [None]
  - TYPE 2 DIABETES MELLITUS [None]
